FAERS Safety Report 14287819 (Version 1)
Quarter: 2017Q4

REPORT INFORMATION
  Report Type: Report from Study
  Country: DE (occurrence: DE)
  Receive Date: 20171215
  Receipt Date: 20171215
  Transmission Date: 20180321
  Serious: Yes (Other)
  Sender: FDA-Public Use
  Company Number: DE-CIPLA LTD.-2017DE23054

PATIENT

DRUGS (5)
  1. CELECOXIB. [Suspect]
     Active Substance: CELECOXIB
     Indication: NEUROBLASTOMA
     Dosage: UNK
     Route: 048
  2. CYCLOPHOSPHAMIDE. [Suspect]
     Active Substance: CYCLOPHOSPHAMIDE
     Indication: NEUROBLASTOMA
     Dosage: 2,5 MG/KG X D (MAXIMUM 100 MG) DAY 1-21
     Route: 048
  3. THALIDOMIDE [Suspect]
     Active Substance: THALIDOMIDE
     Indication: NEUROBLASTOMA
     Dosage: 3 MG/KG INITIALLY AND WEEKLY INCREASE BY 50 MG AS TOLERATED TO 24 MG/KG (MAXIMUM 1000 MG/D)
     Route: 048
  4. ETOPOSIDE. [Suspect]
     Active Substance: ETOPOSIDE
     Indication: NEUROBLASTOMA
     Dosage: 35-50 MG/M X ON DAYS 1-21
     Route: 048
  5. FENOFIBRATE. [Suspect]
     Active Substance: FENOFIBRATE
     Indication: NEUROBLASTOMA
     Dosage: 90 MG/M2, PER DAY
     Route: 048

REACTIONS (1)
  - Disease progression [Unknown]
